FAERS Safety Report 9076104 (Version 1)
Quarter: 2013Q1

REPORT INFORMATION
  Report Type: Report from Study
  Country: US (occurrence: US)
  Receive Date: 20130129
  Receipt Date: 20130129
  Transmission Date: 20140127
  Serious: No
  Sender: FDA-Public Use
  Company Number: US-ABBOTT-12P-163-0933421-00

PATIENT
  Age: 35 Year
  Sex: Male

DRUGS (3)
  1. HUMIRA 40 MG/0.8 ML PEN [Suspect]
     Indication: CROHN^S DISEASE
     Dates: start: 20120327
  2. METHOTREXATE [Concomitant]
     Indication: CROHN^S DISEASE
     Dosage: 15MG WEEKLY
  3. PREDNISONE [Concomitant]
     Indication: CROHN^S DISEASE
     Dosage: 5MG TAPERING DOSE

REACTIONS (22)
  - Nodule [Not Recovered/Not Resolved]
  - Erythema [Recovered/Resolved]
  - Laceration [Not Recovered/Not Resolved]
  - Impaired healing [Not Recovered/Not Resolved]
  - Hangnail [Not Recovered/Not Resolved]
  - Infection [Not Recovered/Not Resolved]
  - Local swelling [Not Recovered/Not Resolved]
  - Impaired healing [Not Recovered/Not Resolved]
  - Erythema [Not Recovered/Not Resolved]
  - Local swelling [Not Recovered/Not Resolved]
  - Feeling hot [Not Recovered/Not Resolved]
  - Musculoskeletal stiffness [Not Recovered/Not Resolved]
  - Bursitis [Not Recovered/Not Resolved]
  - Pain [Not Recovered/Not Resolved]
  - Erythema [Not Recovered/Not Resolved]
  - Pain in extremity [Not Recovered/Not Resolved]
  - Headache [Recovered/Resolved]
  - Nausea [Not Recovered/Not Resolved]
  - Dry mouth [Not Recovered/Not Resolved]
  - Injection site pain [Unknown]
  - Wrong technique in drug usage process [Unknown]
  - Incorrect dose administered [Unknown]
